FAERS Safety Report 18868450 (Version 6)
Quarter: 2021Q3

REPORT INFORMATION
  Report Type: Spontaneous
  Country: US (occurrence: US)
  Receive Date: 20210209
  Receipt Date: 20210713
  Transmission Date: 20211014
  Serious: No
  Sender: FDA-Public Use
  Company Number: US-MYLANLABS-2021M1005310

PATIENT
  Age: 48 Year
  Sex: Female
  Weight: 61 kg

DRUGS (1)
  1. ESTRADIOL TRANSDERMAL SYSTEM [Suspect]
     Active Substance: ESTRADIOL
     Indication: HORMONE REPLACEMENT THERAPY
     Dosage: 0.075 MILLIGRAM, BIWEEKLY
     Route: 062
     Dates: start: 20210302

REACTIONS (7)
  - Application site irritation [Recovered/Resolved]
  - Product quality issue [Unknown]
  - Application site pruritus [Recovered/Resolved]
  - Wrong technique in product usage process [Not Recovered/Not Resolved]
  - Application site erythema [Recovered/Resolved]
  - Product adhesion issue [Not Recovered/Not Resolved]
  - Application site burn [Not Recovered/Not Resolved]

NARRATIVE: CASE EVENT DATE: 2021
